FAERS Safety Report 19820870 (Version 1)
Quarter: 2021Q3

REPORT INFORMATION
  Report Type: Spontaneous
  Country: US (occurrence: US)
  Receive Date: 20210913
  Receipt Date: 20210913
  Transmission Date: 20211014
  Serious: Yes (Hospitalization)
  Sender: FDA-Public Use
  Company Number: US-PFIZER INC-2021599346

PATIENT
  Age: 74 Year
  Sex: Female
  Weight: 110 kg

DRUGS (3)
  1. ANASTROZOLE. [Concomitant]
     Active Substance: ANASTROZOLE
     Dosage: 1 MG, 1X/DAY (1MG ONE PILL PER DAY)
  2. PAROXETINE. [Concomitant]
     Active Substance: PAROXETINE
     Dosage: 40 MG, 1X/DAY (40MG, AND AGAIN ONE PILL PER DAY)
  3. IBRANCE [Suspect]
     Active Substance: PALBOCICLIB
     Indication: BREAST CANCER METASTATIC
     Dosage: 75 MG, 1X/DAY (ONE PILL A DAY FOR THREE WEEKS AND ONE WEEK OFF)
     Route: 048

REACTIONS (1)
  - Infection [Unknown]
